FAERS Safety Report 13670843 (Version 1)
Quarter: 2017Q2

REPORT INFORMATION
  Report Type: Spontaneous
  Country: US (occurrence: US)
  Receive Date: 20170620
  Receipt Date: 20170620
  Transmission Date: 20170830
  Serious: Yes (Other)
  Sender: FDA-Public Use
  Company Number: US-ROCHE-1444621

PATIENT
  Sex: Male

DRUGS (3)
  1. XELODA [Suspect]
     Active Substance: CAPECITABINE
     Dosage: 7 DAYS ON, 7 DAYS OFF.
     Route: 048
     Dates: start: 20140121
  2. XELODA [Suspect]
     Active Substance: CAPECITABINE
     Dosage: 14 DAYS ON ON, 7 DAYS OFF
     Route: 048
     Dates: start: 20141003
  3. XELODA [Suspect]
     Active Substance: CAPECITABINE
     Indication: NEOPLASM MALIGNANT
     Route: 048
     Dates: start: 20140310

REACTIONS (5)
  - Pain [Unknown]
  - Gastric disorder [Unknown]
  - Weight decreased [Not Recovered/Not Resolved]
  - Decreased appetite [Not Recovered/Not Resolved]
  - Fatigue [Not Recovered/Not Resolved]
